FAERS Safety Report 12448838 (Version 3)
Quarter: 2016Q3

REPORT INFORMATION
  Report Type: Report from Study
  Country: BR (occurrence: BR)
  Receive Date: 20160608
  Receipt Date: 20160816
  Transmission Date: 20161109
  Serious: Yes (Life-Threatening, Hospitalization, Other)
  Sender: FDA-Public Use
  Company Number: PHHY2016BR062126

PATIENT
  Age: 77 Year
  Sex: Female
  Weight: 83 kg

DRUGS (3)
  1. SELOZOK [Concomitant]
     Active Substance: METOPROLOL SUCCINATE
     Indication: PRODUCT USED FOR UNKNOWN INDICATION
     Route: 065
  2. ENBREL [Concomitant]
     Active Substance: ETANERCEPT
     Indication: RHEUMATIC DISORDER
     Route: 065
  3. ACLASTA [Suspect]
     Active Substance: ZOLEDRONIC ACID
     Indication: OSTEOPOROSIS
     Dosage: 5 MG, Q12MO
     Route: 042
     Dates: start: 20150430, end: 20150430

REACTIONS (10)
  - Erysipelas [Unknown]
  - Ligament sprain [Unknown]
  - Rash [Not Recovered/Not Resolved]
  - Thrombophlebitis [Recovering/Resolving]
  - Thrombosis [Unknown]
  - Pruritus generalised [Not Recovered/Not Resolved]
  - Peripheral swelling [Unknown]
  - Pyrexia [Unknown]
  - Hypersensitivity [Recovered/Resolved]
  - Abasia [Unknown]

NARRATIVE: CASE EVENT DATE: 20160620
